FAERS Safety Report 19466072 (Version 1)
Quarter: 2021Q2

REPORT INFORMATION
  Report Type: Spontaneous
  Country: CA (occurrence: CA)
  Receive Date: 20210625
  Receipt Date: 20210625
  Transmission Date: 20210717
  Serious: Yes (Hospitalization, Other)
  Sender: FDA-Public Use
  Company Number: CA-CELLTRION INC.-2020CA034886

PATIENT

DRUGS (5)
  1. INFLECTRA [Suspect]
     Active Substance: INFLIXIMAB-DYYB
     Indication: COLITIS ULCERATIVE
     Dosage: 800MG (FOR 10 MG/KG) / 0, 2 AND 6, EVERY 8 WEEKS
     Route: 042
     Dates: start: 20210109
  2. INFLECTRA [Suspect]
     Active Substance: INFLIXIMAB-DYYB
     Dosage: 800MG (FOR 10 MG/KG) / 0, 2 AND 6, EVERY 8 WEEKS
     Route: 042
     Dates: start: 20210405
  3. INFLECTRA [Suspect]
     Active Substance: INFLIXIMAB-DYYB
     Dosage: 1000MG (FOR 10 MG/KG) / 0, 2 AND 6, EVERY 8 WEEKS
     Route: 042
     Dates: start: 20210531
  4. INFLECTRA [Suspect]
     Active Substance: INFLIXIMAB-DYYB
     Indication: COLITIS
     Dosage: 800MG (FOR 10 MG/KG) / 0, 2 AND 6, EVERY 8 WEEKS
     Route: 042
     Dates: start: 20210206
  5. INFLECTRA [Suspect]
     Active Substance: INFLIXIMAB-DYYB
     Dosage: 800MG (FOR 10 MG/KG) / 0, 2 AND 6, EVERY 8 WEEKS
     Route: 042
     Dates: start: 20210405

REACTIONS (3)
  - Gastrointestinal wall thickening [Unknown]
  - Weight increased [Not Recovered/Not Resolved]
  - Off label use [Unknown]

NARRATIVE: CASE EVENT DATE: 20210405
